FAERS Safety Report 20515659 (Version 1)
Quarter: 2022Q1

REPORT INFORMATION
  Report Type: Spontaneous
  Country: GB (occurrence: GB)
  Receive Date: 20220224
  Receipt Date: 20220224
  Transmission Date: 20220423
  Serious: Yes (Other)
  Sender: FDA-Public Use
  Company Number: GB-BEH-2022142185

PATIENT
  Age: 7 Year
  Sex: Male

DRUGS (4)
  1. HIZENTRA [Suspect]
     Active Substance: HUMAN IMMUNOGLOBULIN G
     Indication: Hyper IgM syndrome
     Dosage: 8 GRAM, QOW
     Route: 065
  2. HIZENTRA [Suspect]
     Active Substance: HUMAN IMMUNOGLOBULIN G
     Dosage: 8 GRAM, QOW
     Route: 065
     Dates: start: 20211217
  3. HIZENTRA [Suspect]
     Active Substance: HUMAN IMMUNOGLOBULIN G
     Dosage: 8 GRAM, QW
     Route: 058
     Dates: end: 20211217
  4. HIZENTRA [Suspect]
     Active Substance: HUMAN IMMUNOGLOBULIN G
     Dosage: 8 GRAM, QW
     Route: 058
     Dates: end: 20211217

REACTIONS (7)
  - Pain [Unknown]
  - Infusion site vesicles [Unknown]
  - Pain in extremity [Unknown]
  - Burns second degree [Recovered/Resolved with Sequelae]
  - Infusion site pain [Unknown]
  - Infusion site pruritus [Unknown]
  - Infusion site scar [Unknown]

NARRATIVE: CASE EVENT DATE: 20211217
